FAERS Safety Report 6586055-7 (Version None)
Quarter: 2010Q1

REPORT INFORMATION
  Report Type: 
  Country: None (occurrence: None)
  Receive Date: 20100217
  Receipt Date: 20090120
  Transmission Date: 20100710
  Serious: No
  Sender: FDA-Public Use
  Company Number: US-ALLERGAN-0900689US

PATIENT
  Age: 25 Year
  Sex: Female

DRUGS (2)
  1. BOTOX COSMETIC [Suspect]
     Indication: HYPERHIDROSIS
     Dosage: 100 UNITS, SINGLE
     Dates: start: 20090105, end: 20090105
  2. BOTOX COSMETIC [Suspect]
     Dosage: 50 UNITS, SINGLE
     Dates: start: 20090120, end: 20090120

REACTIONS (1)
  - DRUG INEFFECTIVE [None]
